FAERS Safety Report 20423458 (Version 2)
Quarter: 2022Q1

REPORT INFORMATION
  Report Type: Report from Study
  Country: US (occurrence: US)
  Receive Date: 20220203
  Receipt Date: 20220216
  Transmission Date: 20220423
  Serious: Yes (Hospitalization, Disabling, Other)
  Sender: FDA-Public Use
  Company Number: US-GILEAD-2022-0567567

PATIENT
  Age: 55 Year
  Sex: Male
  Weight: 86 kg

DRUGS (32)
  1. BREXUCABTAGENE AUTOLEUCEL [Suspect]
     Active Substance: BREXUCABTAGENE AUTOLEUCEL
     Indication: Mantle cell lymphoma
     Dosage: 68, UNK
     Route: 042
     Dates: start: 20211220, end: 20211220
  2. CYCLOPHOSPHAMIDE [Suspect]
     Active Substance: CYCLOPHOSPHAMIDE
     Indication: Bone marrow conditioning regimen
     Dosage: 1 DOSAGE FORM, QD; 1005
     Route: 042
     Dates: start: 20211110, end: 20211112
  3. CYCLOPHOSPHAMIDE [Suspect]
     Active Substance: CYCLOPHOSPHAMIDE
     Dosage: 1 DOSAGE FORM; 1005
     Route: 042
     Dates: start: 20211215, end: 20211215
  4. FLUDARABINE [Suspect]
     Active Substance: FLUDARABINE PHOSPHATE
     Indication: Bone marrow conditioning regimen
     Dosage: 1 DOSAGE FORM, QD; 60
     Route: 042
     Dates: start: 20211110, end: 20211112
  5. FLUDARABINE [Suspect]
     Active Substance: FLUDARABINE PHOSPHATE
     Dosage: 1 DOSAGE FORM; 60
     Route: 042
     Dates: start: 20211215, end: 20211215
  6. DEXAMETHASONE [Suspect]
     Active Substance: DEXAMETHASONE
     Indication: Product used for unknown indication
     Dosage: 40
     Route: 065
     Dates: start: 20211101, end: 20211104
  7. DEXAMETHASONE [Suspect]
     Active Substance: DEXAMETHASONE
     Dosage: 10 MG, BID
     Route: 042
     Dates: start: 20220101, end: 20220102
  8. DEXAMETHASONE [Suspect]
     Active Substance: DEXAMETHASONE
     Dosage: 10 MG, ONCE
     Route: 042
     Dates: start: 20220103, end: 20220103
  9. DEXAMETHASONE [Suspect]
     Active Substance: DEXAMETHASONE
     Dosage: 4 MG, ONCE
     Route: 042
     Dates: start: 20220104, end: 20220104
  10. OLMESARTAN [Concomitant]
     Active Substance: OLMESARTAN
     Dosage: 20,MG,TWICE DAILY
     Route: 048
     Dates: start: 2017
  11. METOPROLOL SUCCINATE [Concomitant]
     Active Substance: METOPROLOL SUCCINATE
     Dosage: 100,MG,DAILY
     Route: 048
     Dates: start: 2017
  12. OMEPRAZOLE [Concomitant]
     Active Substance: OMEPRAZOLE
     Dosage: 40,MG,DAILY
     Route: 048
     Dates: start: 2021
  13. ONDANSETRON [Concomitant]
     Active Substance: ONDANSETRON
     Dosage: 8,MG,THREE TIMES DAILY
     Route: 048
     Dates: start: 20211015
  14. BENZONATATE [Concomitant]
     Active Substance: BENZONATATE
     Dosage: 100,MG,THREE TIMES DAILY
     Route: 048
     Dates: start: 20211122
  15. FLUCONAZOLE [Concomitant]
     Active Substance: FLUCONAZOLE
     Dosage: 400,MG,DAILY
     Route: 048
     Dates: start: 20211220, end: 20220104
  16. FLUCONAZOLE [Concomitant]
     Active Substance: FLUCONAZOLE
     Dosage: 400,MG,DAILY
     Route: 048
     Dates: start: 20220121
  17. VALACYCLOVIR [Concomitant]
     Active Substance: VALACYCLOVIR HYDROCHLORIDE
     Dosage: 500,MG,TWICE DAILY
     Route: 048
     Dates: start: 20211221, end: 20220103
  18. VALACYCLOVIR [Concomitant]
     Active Substance: VALACYCLOVIR HYDROCHLORIDE
     Dosage: 500,MG,ONCE
     Route: 048
     Dates: start: 20220104, end: 20220104
  19. PROCHLORPERAZINE [Concomitant]
     Active Substance: PROCHLORPERAZINE
     Dosage: 10,MG,ONCE
     Route: 042
     Dates: start: 20211227, end: 20211227
  20. PROCHLORPERAZINE [Concomitant]
     Active Substance: PROCHLORPERAZINE
     Dosage: 10,MG,ONCE
     Route: 042
     Dates: start: 20220101, end: 20220101
  21. QUETIAPINE [Concomitant]
     Active Substance: QUETIAPINE
     Dosage: 25,MG,DAILY
     Route: 048
     Dates: start: 20211227, end: 20220103
  22. CIPROFLOXACIN [Concomitant]
     Active Substance: CIPROFLOXACIN
     Dosage: 500,MG,TWICE DAILY
     Route: 048
     Dates: start: 20211229, end: 20220103
  23. CIPROFLOXACIN [Concomitant]
     Active Substance: CIPROFLOXACIN
     Dosage: 500,MG,ONCE
     Route: 048
     Dates: start: 20220104, end: 20220104
  24. TRIAMCINOLONE [Concomitant]
     Active Substance: TRIAMCINOLONE
     Dosage: 0.1,OTHER,TWICE DAILY
     Route: 061
     Dates: start: 20211230, end: 20220104
  25. LEVETIRACETAM [Concomitant]
     Active Substance: LEVETIRACETAM
     Dosage: 500,MG,TWICE DAILY
     Route: 048
     Dates: start: 20220101, end: 20220102
  26. LEVETIRACETAM [Concomitant]
     Active Substance: LEVETIRACETAM
     Dosage: 500,MG,ONCE
     Route: 048
     Dates: start: 20220103, end: 20220103
  27. MAGNESIUM SULFATE [Concomitant]
     Active Substance: MAGNESIUM SULFATE
     Dosage: 1,G,ONCE
     Route: 042
     Dates: start: 20220101, end: 20220101
  28. POTASSIUM CHLORIDE [Concomitant]
     Active Substance: POTASSIUM CHLORIDE
     Dosage: 20,OTHER,ONCE
     Route: 042
     Dates: start: 20220101, end: 20220101
  29. SODIUM ACETATE;SODIUM CHLORIDE [Concomitant]
     Dosage: 21,ML,CONTINUOUS
     Route: 042
     Dates: start: 20220102, end: 20220103
  30. FILGRASTIM [Concomitant]
     Active Substance: FILGRASTIM
     Dosage: 480,UG,DAILY
     Route: 058
     Dates: start: 20220121, end: 20220123
  31. BACTRIM DS [Concomitant]
     Active Substance: SULFAMETHOXAZOLE\TRIMETHOPRIM
     Dosage: 800-160,MG,OTHER
     Route: 048
     Dates: start: 20220121
  32. XARELTO [Concomitant]
     Active Substance: RIVAROXABAN
     Dosage: 30,MG,DAILY
     Route: 048
     Dates: start: 20220124

REACTIONS (2)
  - Pulmonary embolism [Not Recovered/Not Resolved]
  - Cystitis [Not Recovered/Not Resolved]

NARRATIVE: CASE EVENT DATE: 20220125
